FAERS Safety Report 8231537-5 (Version None)
Quarter: 2012Q1

REPORT INFORMATION
  Report Type: 
  Country: None (occurrence: None)
  Receive Date: 20120323
  Receipt Date: 20120319
  Transmission Date: 20120608
  Serious: Yes (Other)
  Sender: FDA-Public Use
  Company Number: PHEH2012US006126

PATIENT
  Sex: Female

DRUGS (3)
  1. ANTIALLERGIC AGENTS [Concomitant]
     Indication: HYPERSENSITIVITY
     Dosage: UNK UKN, UNK
  2. ANTIASTHMATICS [Concomitant]
     Indication: ASTHMA
     Dosage: UNK UKN, UNK
  3. DIOVAN HCT [Suspect]
     Dosage: 1 DF(80/12.5 MG) QD

REACTIONS (5)
  - CYST [None]
  - ISCHAEMIA [None]
  - MUSCULOSKELETAL DISCOMFORT [None]
  - LIMB INJURY [None]
  - MYALGIA [None]
